FAERS Safety Report 7009566-9 (Version None)
Quarter: 2010Q3

REPORT INFORMATION
  Report Type: 
  Country: None (occurrence: None)
  Receive Date: 20100923
  Receipt Date: 20100920
  Transmission Date: 20110219
  Serious: Yes (Life-Threatening, Hospitalization)
  Sender: FDA-Public Use
  Company Number: PHHY2010BE62525

PATIENT
  Age: 22 Year
  Sex: Female

DRUGS (1)
  1. EXJADE [Suspect]
     Indication: HAEMOSIDEROSIS
     Dosage: UNK
     Dates: start: 20100501

REACTIONS (1)
  - CIRCULATORY COLLAPSE [None]
